FAERS Safety Report 4731041-2 (Version None)
Quarter: 2005Q3

REPORT INFORMATION
  Report Type: 
  Country: None (occurrence: None)
  Receive Date: 20050719
  Receipt Date: 20050105
  Transmission Date: 20060218
  Serious: Yes (Hospitalization)
  Sender: FDA-Public Use
  Company Number: 2005BI000503

PATIENT
  Age: 55 Year
  Sex: Male
  Weight: 70.7611 kg

DRUGS (14)
  1. AVONEX [Suspect]
     Indication: MULTIPLE SCLEROSIS
     Dosage: 30 UG; QW; IM
     Route: 030
     Dates: start: 19970101, end: 20031202
  2. NIACIN [Concomitant]
  3. MULTIVITAMIN [Concomitant]
  4. ASPIRIN [Concomitant]
  5. COQ10 [Concomitant]
  6. SIMVASTATIN [Concomitant]
  7. TETRACYCLINE [Concomitant]
  8. FOLIC ACID [Concomitant]
  9. VITAMIN B6 [Concomitant]
  10. VITAMIN B-12 [Concomitant]
  11. VIAGRA [Concomitant]
  12. ALLEGRA [Concomitant]
  13. VIOXX [Concomitant]
  14. PROVIGIL [Concomitant]

REACTIONS (4)
  - ARTERIOSCLEROSIS [None]
  - CARDIAC FAILURE CONGESTIVE [None]
  - COGNITIVE DETERIORATION [None]
  - DRUG INEFFECTIVE [None]
